FAERS Safety Report 11278124 (Version 1)
Quarter: 2015Q3

REPORT INFORMATION
  Report Type: Report from Study
  Country: US (occurrence: US)
  Receive Date: 20150717
  Receipt Date: 20150717
  Transmission Date: 20151125
  Serious: Yes (Other)
  Sender: FDA-Public Use
  Company Number: US-ROCHE-ITM201506IM018232

PATIENT
  Age: 71 Year
  Sex: Male
  Weight: 129.33 kg

DRUGS (1)
  1. PIRFENIDONE [Suspect]
     Active Substance: PIRFENIDONE
     Indication: IDIOPATHIC PULMONARY FIBROSIS
     Dosage: 2 CAPSULES THRICE A DAY
     Route: 048
     Dates: start: 20150327, end: 20150626

REACTIONS (7)
  - Skin ulcer [Recovering/Resolving]
  - Rash pruritic [Unknown]
  - Dry skin [Recovering/Resolving]
  - Pulmonary hypertension [Unknown]
  - Lip swelling [Recovering/Resolving]
  - Rash pruritic [Recovering/Resolving]
  - Blister [Unknown]

NARRATIVE: CASE EVENT DATE: 20150529
